FAERS Safety Report 11213858 (Version 1)
Quarter: 2015Q2

REPORT INFORMATION
  Report Type: Spontaneous
  Country: FR (occurrence: FR)
  Receive Date: 20150623
  Receipt Date: 20150623
  Transmission Date: 20150821
  Serious: Yes (Other)
  Sender: FDA-Public Use
  Company Number: FR-BIAL, PORTELA + CA S.A.-BIAL-02982

PATIENT
  Age: 31 Year
  Sex: Female

DRUGS (15)
  1. LEVOCARNIL [Concomitant]
     Active Substance: LEVOCARNITINE
  2. LEVOTHYROX [Concomitant]
     Active Substance: LEVOTHYROXINE
     Dosage: UNK
  3. ARGININE [Concomitant]
     Active Substance: ARGININE
  4. ZEBINIX (ESLICARBAZEPINE ACETATE) [Suspect]
     Active Substance: ESLICARBAZEPINE ACETATE
     Indication: EPILEPSY
     Dosage: UNK
     Route: 048
     Dates: start: 20150320, end: 20150325
  5. LAMICTAL [Concomitant]
     Active Substance: LAMOTRIGINE
  6. RISPERDAL [Concomitant]
     Active Substance: RISPERIDONE
  7. HUMALOG [Concomitant]
     Active Substance: INSULIN LISPRO
  8. ALDACTONE [Concomitant]
     Active Substance: SPIRONOLACTONE
  9. PARACETAMOL [Concomitant]
     Active Substance: ACETAMINOPHEN
  10. URBANYL [Concomitant]
     Active Substance: CLOBAZAM
  11. LANTUS [Concomitant]
     Active Substance: INSULIN GLARGINE
  12. TEGRETOL [Concomitant]
     Active Substance: CARBAMAZEPINE
     Indication: EPILEPSY
     Dosage: UNK
     Dates: end: 20150320
  13. PRIMPERAN [Concomitant]
     Active Substance: METOCLOPRAMIDE HYDROCHLORIDE
  14. COUMADINE [Concomitant]
     Active Substance: WARFARIN SODIUM
  15. LASILIX /00032601/ [Concomitant]
     Active Substance: FUROSEMIDE
     Dosage: UNK

REACTIONS (3)
  - Dizziness [Recovered/Resolved]
  - Galactorrhoea [Recovered/Resolved]
  - Vomiting [Recovered/Resolved]

NARRATIVE: CASE EVENT DATE: 20150325
